FAERS Safety Report 19474375 (Version 1)
Quarter: 2021Q2

REPORT INFORMATION
  Report Type: Report from Study
  Country: US (occurrence: US)
  Receive Date: 20210629
  Receipt Date: 20210629
  Transmission Date: 20210717
  Serious: Yes (Death)
  Sender: FDA-Public Use
  Company Number: US-ASTRAZENECA-2021A564669

PATIENT
  Age: 25065 Day
  Sex: Female
  Weight: 63.5 kg

DRUGS (2)
  1. TAGRISSO [Suspect]
     Active Substance: OSIMERTINIB
     Indication: HEPATIC CANCER
     Route: 048
     Dates: start: 20190101, end: 20210624
  2. TAGRISSO [Suspect]
     Active Substance: OSIMERTINIB
     Indication: LUNG NEOPLASM MALIGNANT
     Route: 048
     Dates: start: 20190101, end: 20210624

REACTIONS (1)
  - Death [Fatal]

NARRATIVE: CASE EVENT DATE: 20210624
